FAERS Safety Report 5894410-3 (Version None)
Quarter: 2008Q3

REPORT INFORMATION
  Report Type: 
  Country: None (occurrence: None)
  Receive Date: 20080922
  Receipt Date: 20080908
  Transmission Date: 20090109
  Serious: Yes (Hospitalization, Other)
  Sender: FDA-Public Use
  Company Number: 2008BI022959

PATIENT
  Age: 45 Year
  Sex: Female

DRUGS (1)
  1. TYSABRI [Suspect]
     Indication: MULTIPLE SCLEROSIS
     Dosage: 300 MG;QM;IV
     Route: 042
     Dates: start: 20080617, end: 20080716

REACTIONS (7)
  - BLOOD URINE PRESENT [None]
  - DYSPAREUNIA [None]
  - HYSTERECTOMY [None]
  - OVARIAN CANCER [None]
  - POLLAKIURIA [None]
  - POST PROCEDURAL COMPLICATION [None]
  - URINARY INCONTINENCE [None]
